FAERS Safety Report 10573266 (Version 1)
Quarter: 2014Q4

REPORT INFORMATION
  Report Type: Spontaneous
  Country: US (occurrence: None)
  Receive Date: 20141107
  Receipt Date: 20141107
  Transmission Date: 20150529
  Serious: Yes (Other)
  Sender: FDA-Public Use
  Company Number: None

PATIENT
  Age: 66 Year
  Sex: Female
  Weight: 49.9 kg

DRUGS (1)
  1. EXELON PATCH [Suspect]
     Active Substance: RIVASTIGMINE
     Indication: DEMENTIA ALZHEIMER^S TYPE
     Dosage: 9.5MG/24 HOURS, APPLIED AS MEDICATED PATCH TO SKIN
     Dates: start: 20140801, end: 20141106

REACTIONS (4)
  - Dermatitis contact [None]
  - Skin reaction [None]
  - Application site vesicles [None]
  - Application site pruritus [None]

NARRATIVE: CASE EVENT DATE: 20141106
